FAERS Safety Report 6117572-1 (Version None)
Quarter: 2009Q1

REPORT INFORMATION
  Report Type: 
  Country: None (occurrence: None)
  Receive Date: 20090314
  Receipt Date: 20090121
  Transmission Date: 20090719
  Serious: No
  Sender: FDA-Public Use
  Company Number: US-ABBOTT-09P-163-0499256-00

PATIENT
  Sex: Female
  Weight: 65.83 kg

DRUGS (5)
  1. HUMIRA [Suspect]
     Indication: JUVENILE ARTHRITIS
     Route: 058
     Dates: start: 20080801
  2. METHOTREXATE [Concomitant]
     Indication: JUVENILE ARTHRITIS
     Route: 048
  3. PLAQUENIL [Concomitant]
     Indication: JUVENILE ARTHRITIS
     Route: 048
     Dates: start: 20090121
  4. PLAQUENIL [Concomitant]
     Route: 048
     Dates: end: 20090120
  5. ISONIAZID [Concomitant]
     Indication: EXPOSURE TO COMMUNICABLE DISEASE
     Route: 048

REACTIONS (1)
  - INCORRECT DOSE ADMINISTERED [None]
